FAERS Safety Report 8993183 (Version 1)
Quarter: 2013Q1

REPORT INFORMATION
  Report Type: Spontaneous
  Country: US (occurrence: US)
  Receive Date: 20130102
  Receipt Date: 20130102
  Transmission Date: 20140127
  Serious: Yes (Other)
  Sender: FDA-Public Use
  Company Number: US-JNJFOC-20121213075

PATIENT
  Age: 55 None
  Sex: Male
  Weight: 136.08 kg

DRUGS (5)
  1. XARELTO [Suspect]
     Indication: DEEP VEIN THROMBOSIS
     Route: 048
     Dates: start: 20121213
  2. XARELTO [Suspect]
     Indication: DEEP VEIN THROMBOSIS
     Route: 048
     Dates: start: 20121106, end: 20121213
  3. UNSPECIFIED FENTANYL [Concomitant]
     Indication: FIBROMYALGIA
     Route: 062
  4. CARISOPRODOL [Concomitant]
     Indication: FIBROMYALGIA
     Route: 048
  5. OXYCODONE [Concomitant]
     Indication: FIBROMYALGIA
     Route: 048

REACTIONS (5)
  - Hyperhidrosis [Not Recovered/Not Resolved]
  - Feeling cold [Not Recovered/Not Resolved]
  - Haemorrhage [Not Recovered/Not Resolved]
  - Nervousness [Not Recovered/Not Resolved]
  - Rash [Not Recovered/Not Resolved]
